FAERS Safety Report 25600396 (Version 1)
Quarter: 2025Q3

REPORT INFORMATION
  Report Type: Spontaneous
  Country: EU (occurrence: EU)
  Receive Date: 20250724
  Receipt Date: 20250724
  Transmission Date: 20251020
  Serious: Yes (Death, Hospitalization, Congenital Anomaly, Other)
  Sender: NOVITIUM PHARMA
  Company Number: EU-NOVITIUMPHARMA-2025DENVP01683

PATIENT

DRUGS (1)
  1. INDOMETHACIN [Suspect]
     Active Substance: INDOMETHACIN
     Indication: Product used for unknown indication
     Route: 064

REACTIONS (3)
  - Death neonatal [Fatal]
  - Patent ductus arteriosus [Unknown]
  - Foetal exposure during pregnancy [Unknown]
